FAERS Safety Report 8319634-7 (Version None)
Quarter: 2012Q2

REPORT INFORMATION
  Report Type: 
  Country: None (occurrence: None)
  Receive Date: 20120427
  Receipt Date: 20120423
  Transmission Date: 20120825
  Serious: Yes (Other)
  Sender: FDA-Public Use
  Company Number: PHHY2012JP035388

PATIENT
  Sex: Female

DRUGS (3)
  1. CYCLOSPORINE [Suspect]
     Dosage: UNK UKN, UNK
  2. AZATHIOPRINE [Concomitant]
     Dosage: UNK UKN, UNK
  3. ADRENAL CORTEX EXTRACT INJ [Concomitant]
     Dosage: UNK UKN, UNK

REACTIONS (1)
  - MENINGITIS ASEPTIC [None]
